FAERS Safety Report 11142104 (Version 1)
Quarter: 2015Q2

REPORT INFORMATION
  Report Type: Spontaneous
  Country: IT (occurrence: IT)
  Receive Date: 20150527
  Receipt Date: 20150527
  Transmission Date: 20150821
  Serious: Yes (Hospitalization, Other)
  Sender: FDA-Public Use
  Company Number: IT-GILEAD-2015-0154868

PATIENT
  Age: 66 Year
  Sex: Female

DRUGS (5)
  1. OLYSIO [Suspect]
     Active Substance: SIMEPREVIR
     Indication: HEPATIC CIRRHOSIS
     Dosage: 150 MG, UNK
     Route: 048
     Dates: start: 20150408, end: 20150508
  2. RANITIDINE [Concomitant]
     Active Substance: RANITIDINE\RANITIDINE HYDROCHLORIDE
     Indication: PRODUCT USED FOR UNKNOWN INDICATION
     Route: 065
  3. COPEGUS [Suspect]
     Active Substance: RIBAVIRIN
     Indication: HEPATIC CIRRHOSIS
     Dosage: 1000 MG, UNK
     Route: 048
     Dates: start: 20150408, end: 20150503
  4. OLMESARTAN MEDOXOMIL. [Concomitant]
     Active Substance: OLMESARTAN MEDOXOMIL
     Indication: PRODUCT USED FOR UNKNOWN INDICATION
     Route: 065
  5. SOVALDI [Suspect]
     Active Substance: SOFOSBUVIR
     Indication: HEPATIC CIRRHOSIS
     Dosage: UNK
     Route: 065
     Dates: start: 20150408, end: 20150508

REACTIONS (1)
  - Ascites [Not Recovered/Not Resolved]

NARRATIVE: CASE EVENT DATE: 20150422
